FAERS Safety Report 12754942 (Version 2)
Quarter: 2016Q3

REPORT INFORMATION
  Report Type: Spontaneous
  Country: TW (occurrence: TW)
  Receive Date: 20160916
  Receipt Date: 20160927
  Transmission Date: 20161109
  Serious: Yes (Death, Other)
  Sender: FDA-Public Use
  Company Number: TW-ASTELLAS-2016US035950

PATIENT
  Age: 82 Year
  Sex: Female

DRUGS (6)
  1. PEMETREXED [Concomitant]
     Active Substance: PEMETREXED
     Indication: LUNG ADENOCARCINOMA
     Dosage: UNK UNK, UNKNOWN FREQ.
     Route: 065
     Dates: start: 20110713, end: 20140924
  2. PEMETREXED [Concomitant]
     Active Substance: PEMETREXED
     Indication: MALIGNANT PLEURAL EFFUSION
  3. TARCEVA [Suspect]
     Active Substance: ERLOTINIB HYDROCHLORIDE
     Indication: LUNG ADENOCARCINOMA
     Dosage: UNK UNK, UNKNOWN FREQ.
     Route: 065
     Dates: start: 20110427, end: 20110713
  4. TARCEVA [Suspect]
     Active Substance: ERLOTINIB HYDROCHLORIDE
     Indication: MALIGNANT PLEURAL EFFUSION
  5. AVASTIN [Suspect]
     Active Substance: BEVACIZUMAB
     Indication: MALIGNANT PLEURAL EFFUSION
  6. AVASTIN [Suspect]
     Active Substance: BEVACIZUMAB
     Indication: LUNG ADENOCARCINOMA
     Dosage: UNK UNK, UNKNOWN FREQ.
     Route: 065
     Dates: start: 20110713, end: 20140924

REACTIONS (3)
  - Pneumonia [Fatal]
  - Respiratory failure [Fatal]
  - Septic shock [Fatal]
